FAERS Safety Report 7280338-3 (Version None)
Quarter: 2011Q1

REPORT INFORMATION
  Report Type: 
  Country: None (occurrence: None)
  Receive Date: 20110208
  Receipt Date: 20110131
  Transmission Date: 20110831
  Serious: Yes (Hospitalization)
  Sender: FDA-Public Use
  Company Number: PL-ELI_LILLY_AND_COMPANY-PL201012004381

PATIENT
  Sex: Male
  Weight: 96 kg

DRUGS (6)
  1. GEMCITABINE HYDROCHLORIDE [Suspect]
     Indication: NON-SMALL CELL LUNG CANCER
     Dosage: 2500 MG, MONTHLY (1/M)
     Route: 042
     Dates: start: 20101208
  2. FORTUM [Concomitant]
     Dosage: UNK, UNK
     Dates: start: 20101215, end: 20101221
  3. AMBROXAN [Concomitant]
  4. ELECTROLYTE SOLUTIONS [Concomitant]
  5. CISPLATIN [Suspect]
     Indication: NON-SMALL CELL LUNG CANCER
     Dosage: 165 MG, OTHER
     Route: 042
     Dates: start: 20101208
  6. SALINE [Concomitant]

REACTIONS (1)
  - BRONCHITIS [None]
